FAERS Safety Report 17826668 (Version 4)
Quarter: 2020Q3

REPORT INFORMATION
  Report Type: Report from Study
  Country: IT (occurrence: IT)
  Receive Date: 20200526
  Receipt Date: 20200723
  Transmission Date: 20201102
  Serious: Yes (Hospitalization, Other)
  Sender: FDA-Public Use
  Company Number: IT-EXELIXIS-XL18420030147

PATIENT
  Age: 80 Year
  Sex: Male
  Weight: 85 kg

DRUGS (12)
  1. DELTACORTENE [Concomitant]
     Active Substance: PREDNISONE
  2. AVODART [Concomitant]
     Active Substance: DUTASTERIDE
  3. FOSFORO [Concomitant]
  4. PRITOR PLUS [Concomitant]
     Active Substance: TELMISARTAN
  5. CARDIRENE [Concomitant]
     Active Substance: ASPIRIN DL-LYSINE
  6. OFUXAL [Concomitant]
  7. PANTOPRAZOLO [Concomitant]
     Active Substance: PANTOPRAZOLE SODIUM
  8. EUTIROX [Concomitant]
     Active Substance: LEVOTHYROXINE SODIUM
  9. ATEZOLIZUMAB. [Suspect]
     Active Substance: ATEZOLIZUMAB
     Indication: NON-SMALL CELL LUNG CANCER
     Dosage: 1200 MG, Q3WEEKS
     Route: 042
     Dates: start: 20190828
  10. XL184 [Suspect]
     Active Substance: CABOZANTINIB
     Indication: NON-SMALL CELL LUNG CANCER
     Dosage: 40 MG, QD
     Route: 048
     Dates: start: 20190828
  11. XL184 [Suspect]
     Active Substance: CABOZANTINIB
     Dosage: 20 MG, QD
     Route: 048
  12. CETIRIZINA [Concomitant]
     Active Substance: CETIRIZINE HYDROCHLORIDE

REACTIONS (3)
  - Cholecystitis [Recovered/Resolved with Sequelae]
  - Diverticular perforation [Recovered/Resolved]
  - Large intestine perforation [Recovered/Resolved with Sequelae]

NARRATIVE: CASE EVENT DATE: 20200522
